FAERS Safety Report 19993041 (Version 1)
Quarter: 2021Q4

REPORT INFORMATION
  Report Type: Spontaneous
  Country: IT (occurrence: IT)
  Receive Date: 20211026
  Receipt Date: 20211026
  Transmission Date: 20220303
  Serious: Yes (Death, Hospitalization)
  Sender: FDA-Public Use
  Company Number: IT-TEVA-2021-IT-1968859

PATIENT
  Age: 23 Year
  Sex: Female

DRUGS (9)
  1. VALGANCICLOVIR [Suspect]
     Active Substance: VALGANCICLOVIR
     Indication: Cytomegalovirus infection
     Dosage: 1800 MILLIGRAM DAILY;
     Route: 065
     Dates: start: 2018
  2. TACROLIMUS [Suspect]
     Active Substance: TACROLIMUS
     Indication: Immunosuppressant drug therapy
     Dosage: .5 MILLIGRAM DAILY;
     Route: 065
     Dates: start: 2018
  3. GANCICLOVIR [Suspect]
     Active Substance: GANCICLOVIR
     Indication: Cytomegalovirus infection
     Dosage: 500 MILLIGRAM DAILY;
     Route: 042
     Dates: start: 2019
  4. GANCICLOVIR [Suspect]
     Active Substance: GANCICLOVIR
     Dosage: 400 MILLIGRAM DAILY;
     Route: 042
     Dates: start: 2019
  5. GANCICLOVIR [Suspect]
     Active Substance: GANCICLOVIR
     Dosage: 460 MILLIGRAM DAILY;
     Route: 042
     Dates: start: 2019
  6. FOSCARNET [Suspect]
     Active Substance: FOSCARNET
     Indication: Cytomegalovirus infection
     Dosage: 270 MG/KG DAILY;
     Route: 065
     Dates: start: 2019
  7. LETERMOVIR [Suspect]
     Active Substance: LETERMOVIR
     Indication: Cytomegalovirus infection
     Dosage: 480 MILLIGRAM DAILY;
     Route: 048
     Dates: start: 2019
  8. LINEZOLID [Concomitant]
     Active Substance: LINEZOLID
     Indication: Staphylococcal infection
     Route: 065
     Dates: start: 2019
  9. DAPTOMYCIN [Concomitant]
     Active Substance: DAPTOMYCIN
     Indication: Staphylococcal infection
     Route: 065
     Dates: start: 2019

REACTIONS (9)
  - Cytomegalovirus infection [Fatal]
  - Myelosuppression [Fatal]
  - Neutropenia [Fatal]
  - Electrolyte imbalance [Fatal]
  - Respiratory distress [Fatal]
  - Pneumonia [Fatal]
  - Pathogen resistance [Fatal]
  - Nephropathy toxic [Fatal]
  - Drug ineffective [Fatal]

NARRATIVE: CASE EVENT DATE: 20180101
